FAERS Safety Report 8868101 (Version 1)
Quarter: 2012Q4

REPORT INFORMATION
  Report Type: 
  Country: US (occurrence: US)
  Receive Date: 20121025
  Receipt Date: 20121025
  Transmission Date: 20130627
  Serious: No
  Sender: FDA-Public Use
  Company Number: US-AMGEN-USASP2012019161

PATIENT
  Sex: Female
  Weight: 99.77 kg

DRUGS (8)
  1. ENBREL [Suspect]
     Indication: PRODUCT USED FOR UNKNOWN INDICATION
     Dosage: 50 mg, qwk
     Route: 058
  2. MELOXICAM [Concomitant]
     Dosage: 7.5 mg, UNK
  3. ZOCOR [Concomitant]
     Dosage: 10 mg, UNK
  4. CYCLOBENZAPRIN HCL [Concomitant]
     Dosage: 5 mg, UNK
  5. OXYCODONE [Concomitant]
     Dosage: 10 mg, UNK
  6. OPANA [Concomitant]
     Dosage: 15 mg, UNK
  7. SULFASALAZIN [Concomitant]
     Dosage: 500 mg, UNK
  8. PRILOSEC                           /00661201/ [Concomitant]
     Dosage: 10 mg, UNK

REACTIONS (1)
  - Foot operation [Unknown]
